FAERS Safety Report 16011845 (Version 1)
Quarter: 2019Q1

REPORT INFORMATION
  Report Type: Spontaneous
  Country: US (occurrence: US)
  Receive Date: 20190130
  Receipt Date: 20190130
  Transmission Date: 20190418
  Serious: No
  Sender: FDA-Public Use
  Company Number: None

PATIENT
  Age: 52 Year
  Sex: Male

DRUGS (1)
  1. GENTAMICIN SULFATE 40 HOSPIRA [Suspect]
     Active Substance: GENTAMICIN SULFATE
     Indication: SUBACUTE ENDOCARDITIS
     Route: 042
     Dates: end: 20190122

REACTIONS (1)
  - Tinnitus [None]

NARRATIVE: CASE EVENT DATE: 20190121
